FAERS Safety Report 10232031 (Version 1)
Quarter: 2014Q2

REPORT INFORMATION
  Report Type: Spontaneous
  Country: US (occurrence: US)
  Receive Date: 20140612
  Receipt Date: 20140612
  Transmission Date: 20141212
  Serious: No
  Sender: FDA-Public Use
  Company Number: US-BIOGENIDEC-2014BI049166

PATIENT
  Age: 57 Year
  Sex: Female

DRUGS (12)
  1. TECFIDERA [Suspect]
     Indication: MULTIPLE SCLEROSIS
     Route: 048
     Dates: start: 20130617
  2. CYCLOBENZAPRINE HCL [Concomitant]
  3. GABAPENTIN [Concomitant]
  4. MECLIZINE HCL [Concomitant]
  5. NAPROXEN [Concomitant]
  6. OXYCODONE HCL [Concomitant]
  7. TIZANIDINE HCL [Concomitant]
  8. TYLENOL [Concomitant]
  9. VALIUM [Concomitant]
  10. ZOFRAN [Concomitant]
  11. NORTRIPTYLINE [Concomitant]
  12. TOPAMAX [Concomitant]

REACTIONS (6)
  - Anxiety [Unknown]
  - Headache [Unknown]
  - Asthenia [Unknown]
  - Mental impairment [Unknown]
  - Hemiparesis [Unknown]
  - Nausea [Unknown]
